FAERS Safety Report 7650692-9 (Version None)
Quarter: 2011Q3

REPORT INFORMATION
  Report Type: 
  Country: None (occurrence: None)
  Receive Date: 20110802
  Receipt Date: 20110728
  Transmission Date: 20111222
  Serious: Yes (Hospitalization)
  Sender: FDA-Public Use
  Company Number: FR-BRISTOL-MYERS SQUIBB COMPANY-15933377

PATIENT
  Age: 58 Year
  Sex: Female

DRUGS (5)
  1. CISPLATIN [Suspect]
     Indication: NON-SMALL CELL LUNG CANCER
     Route: 042
     Dates: start: 20100125, end: 20100406
  2. LEVOTHYROXINE SODIUM [Concomitant]
  3. OLMESARTAN MEDOXOMIL + HCTZ [Concomitant]
     Dates: end: 20100203
  4. NEBIVOLOL HCL [Concomitant]
     Dates: end: 20100204
  5. DOCETAXEL [Suspect]
     Indication: NON-SMALL CELL LUNG CANCER
     Route: 042
     Dates: start: 20100125, end: 20100406

REACTIONS (2)
  - DEVICE RELATED INFECTION [None]
  - GASTROINTESTINAL TOXICITY [None]
